FAERS Safety Report 9803931 (Version 2)
Quarter: 2014Q1

REPORT INFORMATION
  Report Type: Spontaneous
  Country: US (occurrence: US)
  Receive Date: 20140108
  Receipt Date: 20140127
  Transmission Date: 20141002
  Serious: Yes (Other)
  Sender: FDA-Public Use
  Company Number: US-PFIZER INC-2014001978

PATIENT
  Age: 67 Year
  Sex: Male

DRUGS (4)
  1. LYRICA [Suspect]
     Indication: NEUROPATHY PERIPHERAL
     Dosage: 50/75
     Dates: start: 20131204, end: 20140103
  2. LYRICA [Suspect]
     Dosage: 50 MG, 1X/DAY
     Route: 048
     Dates: start: 20131204
  3. LYRICA [Suspect]
     Dosage: 50 MG, 2X/DAY
     Dates: end: 20140103
  4. CHLORTHALIDONE [Concomitant]
     Dosage: UNK

REACTIONS (6)
  - Apraxia [Unknown]
  - Dysgraphia [Unknown]
  - Motor dysfunction [Unknown]
  - Generalised oedema [Not Recovered/Not Resolved]
  - Local swelling [Not Recovered/Not Resolved]
  - Somnolence [Unknown]
